FAERS Safety Report 7500605-5 (Version None)
Quarter: 2011Q2

REPORT INFORMATION
  Report Type: 
  Country: None (occurrence: None)
  Receive Date: 20110524
  Receipt Date: 20100727
  Transmission Date: 20111010
  Serious: No
  Sender: FDA-Public Use
  Company Number: US-NOVEN-ALL1-2010-04043

PATIENT

DRUGS (3)
  1. DAYTRANA [Suspect]
     Dosage: 10 MG, 1X/DAY:QD
     Route: 062
     Dates: start: 20080101, end: 20100101
  2. FLONASE [Concomitant]
     Dosage: 50 UG, 1X/DAY:QD (ONE PUFF IN EACH NOSTRIL DAILY)
     Route: 045
     Dates: start: 20100101
  3. DAYTRANA [Suspect]
     Dosage: 10 MG, 1X/DAY:QD
     Route: 062
     Dates: start: 20100101

REACTIONS (3)
  - PRODUCT QUALITY ISSUE [None]
  - DECREASED APPETITE [None]
  - ABNORMAL LOSS OF WEIGHT [None]
